FAERS Safety Report 20232091 (Version 1)
Quarter: 2021Q4

REPORT INFORMATION
  Report Type: Spontaneous
  Country: US (occurrence: US)
  Receive Date: 20211227
  Receipt Date: 20211227
  Transmission Date: 20220303
  Serious: No
  Sender: FDA-Public Use
  Company Number: US-JNJFOC-20211220598

PATIENT
  Age: 4 Decade
  Sex: Female
  Weight: 59.020 kg

DRUGS (2)
  1. REMICADE [Suspect]
     Active Substance: INFLIXIMAB
     Indication: Crohn^s disease
     Route: 042
     Dates: start: 201808
  2. ALCOHOL [Suspect]
     Active Substance: ALCOHOL
     Indication: Product used for unknown indication
     Route: 065

REACTIONS (4)
  - Cyst [Not Recovered/Not Resolved]
  - Renal cyst [Not Recovered/Not Resolved]
  - Ovarian cyst [Unknown]
  - Pain [Unknown]

NARRATIVE: CASE EVENT DATE: 20190101
